FAERS Safety Report 6635200-3 (Version None)
Quarter: 2010Q1

REPORT INFORMATION
  Report Type: 
  Country: None (occurrence: None)
  Receive Date: 20100312
  Receipt Date: 20100312
  Transmission Date: 20100710
  Serious: Yes (Hospitalization)
  Sender: FDA-Public Use
  Company Number: None

PATIENT
  Age: 53 Year
  Sex: Male
  Weight: 83.6 kg

DRUGS (2)
  1. MIRTAZAPINE [Suspect]
     Indication: DEPRESSION
     Dosage: 15 MG HS PO
     Route: 048
     Dates: start: 20100204, end: 20100219
  2. MIRTAZAPINE [Suspect]
     Indication: INSOMNIA
     Dosage: 15 MG HS PO
     Route: 048
     Dates: start: 20100204, end: 20100219

REACTIONS (3)
  - BLISTER [None]
  - SKIN DISCOLOURATION [None]
  - SKIN LESION [None]
